FAERS Safety Report 6159967-6 (Version None)
Quarter: 2009Q2

REPORT INFORMATION
  Report Type: 
  Country: None (occurrence: None)
  Receive Date: 20090420
  Receipt Date: 20090409
  Transmission Date: 20091009
  Serious: Yes (Hospitalization, Other)
  Sender: FDA-Public Use
  Company Number: GB-BAXTER-2008BH010897

PATIENT
  Age: 74 Year
  Sex: Female

DRUGS (13)
  1. CYCLOPHOSPHAMIDE [Suspect]
     Indication: CHRONIC LYMPHOCYTIC LEUKAEMIA
     Route: 048
     Dates: start: 20080227
  2. CYCLOPHOSPHAMIDE [Suspect]
     Route: 048
     Dates: start: 20080318
  3. ALEMTUZUMAB [Suspect]
     Indication: CHRONIC LYMPHOCYTIC LEUKAEMIA
     Route: 058
     Dates: start: 20080826
  4. ALEMTUZUMAB [Suspect]
     Route: 058
     Dates: start: 20081001, end: 20090206
  5. ALEMTUZUMAB [Suspect]
     Route: 058
     Dates: start: 20080827
  6. ALEMTUZUMAB [Suspect]
     Route: 058
     Dates: start: 20080828
  7. FLUDARABINE PHOSPHATE [Suspect]
     Indication: CHRONIC LYMPHOCYTIC LEUKAEMIA
     Route: 048
     Dates: start: 20080227
  8. FLUDARABINE PHOSPHATE [Suspect]
     Route: 048
     Dates: start: 20080318
  9. ACYCLOVIR [Concomitant]
     Indication: ANTIVIRAL PROPHYLAXIS
     Route: 065
  10. CHLORAMBUCIL [Concomitant]
     Indication: CHRONIC LYMPHOCYTIC LEUKAEMIA
     Route: 065
  11. CO-TRIMOXAZOLE [Concomitant]
     Indication: ANTIFUNGAL PROPHYLAXIS
     Route: 065
  12. DEXAMETHASONE TAB [Concomitant]
     Indication: PLATELET COUNT DECREASED
     Route: 065
     Dates: end: 20080826
  13. PREDNISOLONE [Concomitant]
     Indication: PLATELET COUNT DECREASED
     Route: 065

REACTIONS (5)
  - BONE MARROW FAILURE [None]
  - DRUG INEFFECTIVE [None]
  - LYMPHOCYTE COUNT DECREASED [None]
  - MYCOBACTERIUM KANSASII INFECTION [None]
  - PANCYTOPENIA [None]
